FAERS Safety Report 23077064 (Version 2)
Quarter: 2023Q4

REPORT INFORMATION
  Report Type: Report from Study
  Country: DZ (occurrence: DZ)
  Receive Date: 20231018
  Receipt Date: 20231102
  Transmission Date: 20240110
  Serious: Yes (Other)
  Sender: FDA-Public Use
  Company Number: DZ-Merck Healthcare KGaA-2023480495

PATIENT
  Age: 44 Year
  Sex: Female

DRUGS (5)
  1. REBIF [Suspect]
     Active Substance: INTERFERON BETA-1A
     Indication: Multiple sclerosis
     Route: 058
     Dates: start: 20230506
  2. REBIF [Suspect]
     Active Substance: INTERFERON BETA-1A
     Route: 058
     Dates: end: 202308
  3. CELEBREX [Concomitant]
     Active Substance: CELECOXIB
     Indication: Bone pain
     Route: 048
     Dates: start: 20230926, end: 20230928
  4. CELEBREX [Concomitant]
     Active Substance: CELECOXIB
     Indication: Arthralgia
  5. ASPIRIN DL-LYSINE [Concomitant]
     Active Substance: ASPIRIN DL-LYSINE
     Indication: Product used for unknown indication
     Dosage: START DATE OF TREATMENT: 3 YEARS AGO
     Route: 048

REACTIONS (5)
  - Carditis [Unknown]
  - Psoriatic arthropathy [Unknown]
  - Gastritis [Recovering/Resolving]
  - Oesophagitis [Recovering/Resolving]
  - Aphthous ulcer [Not Recovered/Not Resolved]

NARRATIVE: CASE EVENT DATE: 20230601
